FAERS Safety Report 5504746-3 (Version None)
Quarter: 2007Q4

REPORT INFORMATION
  Report Type: 
  Country: None (occurrence: None)
  Receive Date: 20071102
  Receipt Date: 20071025
  Transmission Date: 20080405
  Serious: Yes (Other)
  Sender: FDA-Public Use
  Company Number: DE-SHR-DE-2007-041171

PATIENT
  Age: 94 Year
  Sex: Male
  Weight: 60 kg

DRUGS (3)
  1. SOTALOL HYDROCHLORIDE [Suspect]
     Indication: OFF LABEL USE
     Dosage: 800 MG, 1 DOSE
     Route: 048
     Dates: start: 20071025, end: 20071025
  2. NIFEHEXAL [Suspect]
     Dosage: 300 MG, 1 DOSE
     Route: 048
     Dates: start: 20071025, end: 20071025
  3. ZOPICLONE [Suspect]
     Dosage: 75 MG, 1 DOSE
     Route: 048
     Dates: start: 20071025, end: 20071025

REACTIONS (5)
  - BRADYCARDIA [None]
  - FATIGUE [None]
  - HYPOTENSION [None]
  - INTENTIONAL OVERDOSE [None]
  - SUICIDE ATTEMPT [None]
